FAERS Safety Report 25204786 (Version 1)
Quarter: 2025Q2

REPORT INFORMATION
  Report Type: Spontaneous
  Country: US (occurrence: US)
  Receive Date: 20250416
  Receipt Date: 20250416
  Transmission Date: 20250717
  Serious: No
  Sender: ROCHE
  Company Number: US-ROCHE-10000255769

PATIENT
  Sex: Male

DRUGS (18)
  1. CELLCEPT [Suspect]
     Active Substance: MYCOPHENOLATE MOFETIL
     Indication: Sleep apnoea syndrome
     Route: 065
  2. AMIODARONE H [Concomitant]
  3. ATENOLOL [Concomitant]
     Active Substance: ATENOLOL
  4. ATORVASTATIN [Concomitant]
     Active Substance: ATORVASTATIN
  5. BUMETANIDE [Concomitant]
     Active Substance: BUMETANIDE
  6. CEPHALEXIN [Concomitant]
     Active Substance: CEPHALEXIN
  7. ELIQUIS [Concomitant]
     Active Substance: APIXABAN
  8. ESCITALOPRAM [Concomitant]
     Active Substance: ESCITALOPRAM OXALATE
  9. GABAPENTIN [Concomitant]
     Active Substance: GABAPENTIN
  10. GLIPIZIDE [Concomitant]
     Active Substance: GLIPIZIDE
  11. IPRATROPIUM [Concomitant]
     Active Substance: IPRATROPIUM
  12. LEVOTHYROXINE [Concomitant]
     Active Substance: LEVOTHYROXINE
  13. METFORMIN HYDROCHLORIDE [Concomitant]
     Active Substance: METFORMIN HYDROCHLORIDE
  14. METOLAZONE [Concomitant]
     Active Substance: METOLAZONE
  15. PANTOPRAZOLE [Concomitant]
     Active Substance: PANTOPRAZOLE
  16. POTASSIUM CH [Concomitant]
  17. SPIRIVA RESP [Concomitant]
  18. WIXELA INHUB [Concomitant]
     Active Substance: FLUTICASONE PROPIONATE\SALMETEROL XINAFOATE

REACTIONS (3)
  - Off label use [Unknown]
  - Abdominal pain upper [Unknown]
  - Flatulence [Unknown]
